FAERS Safety Report 9030348 (Version 1)
Quarter: 2013Q1

REPORT INFORMATION
  Report Type: Spontaneous
  Country: BR (occurrence: BR)
  Receive Date: 20130122
  Receipt Date: 20130122
  Transmission Date: 20140127
  Serious: Yes (Other)
  Sender: FDA-Public Use
  Company Number: BR-PFIZER INC-2013020229

PATIENT
  Age: 88 Year
  Sex: Female

DRUGS (3)
  1. LYRICA [Suspect]
     Indication: PAIN
     Dosage: 75 MG (ONE CAPSULE), 1X/DAY
     Route: 048
  2. FRONTAL [Concomitant]
     Dosage: 1 MG, 1X/DAY
     Dates: start: 20030924
  3. XALATAN [Concomitant]
     Dosage: ONE DROP IN EACH EYE, UNSPECIFIED FREQUENCY
     Dates: start: 20110224

REACTIONS (7)
  - Mental disorder [Unknown]
  - Balance disorder [Unknown]
  - Nausea [Unknown]
  - Muscle spasms [Unknown]
  - Malaise [Unknown]
  - Dizziness [Unknown]
  - Headache [Unknown]
